FAERS Safety Report 6222531-4 (Version None)
Quarter: 2009Q2

REPORT INFORMATION
  Report Type: 
  Country: None (occurrence: None)
  Receive Date: 20090611
  Receipt Date: 20090530
  Transmission Date: 20091009
  Serious: Yes (Death, Other)
  Sender: FDA-Public Use
  Company Number: BE-PFIZER INC-2009223222

PATIENT

DRUGS (1)
  1. SUNITINIB MALATE [Suspect]
     Dosage: UNK

REACTIONS (3)
  - DEATH [None]
  - DYSPNOEA [None]
  - OEDEMA [None]
